FAERS Safety Report 20332140 (Version 1)
Quarter: 2022Q1

REPORT INFORMATION
  Report Type: Spontaneous
  Country: US (occurrence: US)
  Receive Date: 20220113
  Receipt Date: 20220113
  Transmission Date: 20220423
  Serious: No
  Sender: FDA-Public Use
  Company Number: US-BIOGEN-2017BI00449463

PATIENT
  Sex: Female

DRUGS (8)
  1. TECFIDERA [Suspect]
     Active Substance: DIMETHYL FUMARATE
     Indication: Multiple sclerosis
     Dosage: MAINTENANCE DOSE;TAKE 1 CAPSULE BY?MOUTH TWICE A DAY
     Route: 050
  2. TECFIDERA [Suspect]
     Active Substance: DIMETHYL FUMARATE
     Route: 065
     Dates: start: 20170619
  3. GABAPENTIN [Concomitant]
     Active Substance: GABAPENTIN
     Route: 050
  4. VOLTAREN [Concomitant]
     Active Substance: DICLOFENAC SODIUM
     Route: 050
  5. AMBIEN [Concomitant]
     Active Substance: ZOLPIDEM TARTRATE
     Route: 050
  6. ALPRAZOLAM [Concomitant]
     Active Substance: ALPRAZOLAM
     Route: 050
  7. FIBER [Concomitant]
     Active Substance: PSYLLIUM HUSK
     Route: 050
  8. HYDROCODONE BITARTRATE [Concomitant]
     Active Substance: HYDROCODONE BITARTRATE
     Route: 050

REACTIONS (5)
  - Memory impairment [Not Recovered/Not Resolved]
  - Irritability [Unknown]
  - Back pain [Unknown]
  - Arthralgia [Unknown]
  - Vomiting [Unknown]
